FAERS Safety Report 6290544-2 (Version None)
Quarter: 2009Q3

REPORT INFORMATION
  Report Type: 
  Country: None (occurrence: None)
  Receive Date: 20090730
  Receipt Date: 20090717
  Transmission Date: 20100115
  Serious: No
  Sender: FDA-Public Use
  Company Number: US-ROCHE-599404

PATIENT
  Sex: Male
  Weight: 3.6 kg

DRUGS (6)
  1. ISOTRETINOIN [Suspect]
     Indication: DRUG USE FOR UNKNOWN INDICATION
     Dosage: THE PATIENT WAS DISPENSED ACCUTANE 40 MG CAPSULE ON 02 OCT 2006 AND 19 MAR 2008 + 11 SEP 2008
     Route: 064
     Dates: end: 20080911
  2. CONTRACEPTIVE [Concomitant]
     Dosage: FORM: PILL
  3. VITAMIN TAB [Concomitant]
     Indication: PREGNANCY
     Dates: start: 20081117, end: 20090527
  4. FOLIC ACID [Concomitant]
     Dates: start: 20081117, end: 20090527
  5. FLU SHOT [Concomitant]
     Dates: start: 20081209, end: 20081209
  6. REPLIVA 21/7 [Concomitant]
     Dates: start: 20090106, end: 20090527

REACTIONS (2)
  - LIVE BIRTH [None]
  - NO ADVERSE EVENT [None]
